FAERS Safety Report 8154308-7 (Version None)
Quarter: 2012Q1

REPORT INFORMATION
  Report Type: 
  Country: None (occurrence: None)
  Receive Date: 20120103
  Receipt Date: 20111026
  Transmission Date: 20120608
  Serious: No
  Sender: FDA-Public Use
  Company Number: AE-2011-000988

PATIENT
  Age: 49 Year
  Sex: Female
  Weight: 68.0396 kg

DRUGS (20)
  1. INCIVEK [Suspect]
     Dosage: 2250 MG (750 MG,1 IN 8 HR),ORAL
     Route: 048
     Dates: start: 20110818
  2. RIBAVIRIN [Concomitant]
  3. ATIVAN [Concomitant]
  4. ZOLPIDEM [Concomitant]
  5. FLUCANOZOLE (FLUCONAZOLE) [Concomitant]
  6. NAPROXEN [Concomitant]
  7. LORAZEPAM [Concomitant]
  8. VENTOLIN INHALER (SALBUTAMOL SULFATE) [Concomitant]
  9. ALBUTEROL SULFATE [Concomitant]
  10. TEGRETOL [Concomitant]
  11. VALSARTAN [Concomitant]
  12. CARBAMAZEPINE [Concomitant]
  13. PEGASYS [Concomitant]
  14. HYDROCHLOROTHIAZIDE [Concomitant]
  15. HYDROCODONE WITH TYELENOL (VICODIN) [Concomitant]
  16. DIOVAN (CO-DIOVAN) [Concomitant]
  17. ADVAIR HFA [Concomitant]
  18. METOPROLOL SUCCINATE [Concomitant]
  19. TERCONAZOLE [Concomitant]
  20. AZITHROMYCIN [Concomitant]

REACTIONS (1)
  - BRONCHITIS [None]
